FAERS Safety Report 5307525-5 (Version None)
Quarter: 2007Q2

REPORT INFORMATION
  Report Type: 
  Country: None (occurrence: None)
  Receive Date: 20070425
  Receipt Date: 20070413
  Transmission Date: 20071010
  Serious: Yes (Other)
  Sender: FDA-Public Use
  Company Number: PFIZER INC-2007018035

PATIENT
  Age: 46 Year
  Sex: Male
  Weight: 59 kg

DRUGS (14)
  1. LYRICA [Suspect]
     Indication: BACK PAIN
     Route: 048
  2. LYRICA [Suspect]
     Indication: MUSCULOSKELETAL PAIN
  3. OXYCODONE HCL [Concomitant]
  4. ACETAMINOPHEN AND OXYCODONE HCL [Concomitant]
  5. ESOMEPRAZOLE MAGNESIUM [Concomitant]
  6. TIOTROPIUM [Concomitant]
  7. ALBUTEROL [Concomitant]
     Route: 055
  8. BUPROPION HCL [Concomitant]
  9. DIAZEPAM [Concomitant]
  10. SILDENAFIL CITRATE [Concomitant]
  11. MOMETASONE FUROATE [Concomitant]
     Route: 055
  12. FORMOTEROL FUMARATE [Concomitant]
     Route: 055
  13. DICLOFENAC [Concomitant]
  14. CYCLOBENZAPRINE HCL [Concomitant]

REACTIONS (10)
  - ABDOMINAL PAIN [None]
  - DIARRHOEA [None]
  - DRUG WITHDRAWAL SYNDROME [None]
  - HYPERHIDROSIS [None]
  - NAUSEA [None]
  - PILOERECTION [None]
  - RESTLESSNESS [None]
  - SALIVARY HYPERSECRETION [None]
  - VOMITING [None]
  - YAWNING [None]
